FAERS Safety Report 7029181-0 (Version None)
Quarter: 2010Q4

REPORT INFORMATION
  Report Type: 
  Country: None (occurrence: None)
  Receive Date: 20101005
  Receipt Date: 20100927
  Transmission Date: 20110411
  Serious: Yes (Other)
  Sender: FDA-Public Use
  Company Number: CO-WYE-H17792410

PATIENT
  Sex: Male

DRUGS (4)
  1. RAPAMUNE [Suspect]
     Dosage: 4 MG DAILY FROM UNPSECIFED DATE TO 2010 THEN RESTARTED AT 3 MG DAILY
     Route: 048
  2. VYTORIN [Concomitant]
     Indication: BLOOD CHOLESTEROL INCREASED
     Dosage: 40 MG EVERY
  3. CAPTOPRIL [Concomitant]
     Dosage: 25 MG EVERY
  4. PLAVIX [Concomitant]
     Indication: THROMBOSIS PROPHYLAXIS

REACTIONS (3)
  - ARTERIAL STENOSIS [None]
  - MEMORY IMPAIRMENT [None]
  - MYOCARDIAL INFARCTION [None]
